FAERS Safety Report 12726192 (Version 1)
Quarter: 2016Q3

REPORT INFORMATION
  Report Type: Spontaneous
  Country: US (occurrence: US)
  Receive Date: 20160906
  Receipt Date: 20160906
  Transmission Date: 20161109
  Serious: Yes (Disabling)
  Sender: FDA-Public Use
  Company Number: None

PATIENT
  Age: 48 Year
  Sex: Male
  Weight: 84.15 kg

DRUGS (9)
  1. LISINOPRIL. [Concomitant]
     Active Substance: LISINOPRIL
  2. LANTUS [Concomitant]
     Active Substance: INSULIN GLARGINE
  3. METRONIDAZOLE. [Concomitant]
     Active Substance: METRONIDAZOLE
  4. VITAMIN D [Concomitant]
     Active Substance: CHOLECALCIFEROL
  5. CIPRO [Suspect]
     Active Substance: CIPROFLOXACIN HYDROCHLORIDE
     Indication: ANAL ABSCESS
     Route: 048
     Dates: start: 20160903, end: 20160903
  6. HUMALOG [Concomitant]
     Active Substance: INSULIN LISPRO
  7. AMOXICILLIN. [Concomitant]
     Active Substance: AMOXICILLIN
  8. ALLOPURINOL. [Concomitant]
     Active Substance: ALLOPURINOL
  9. WELLESSE JOINT MOVEMENT GLUCOSAMINE LIQUID, BERRY [Concomitant]

REACTIONS (3)
  - Pain in extremity [None]
  - Arthralgia [None]
  - Abasia [None]

NARRATIVE: CASE EVENT DATE: 20160903
